FAERS Safety Report 6333495-7 (Version None)
Quarter: 2009Q3

REPORT INFORMATION
  Report Type: 
  Country: None (occurrence: None)
  Receive Date: 20090828
  Receipt Date: 20090817
  Transmission Date: 20100115
  Serious: Yes (Hospitalization, Other)
  Sender: FDA-Public Use
  Company Number: US-ELI_LILLY_AND_COMPANY-US200705000947

PATIENT
  Sex: Female

DRUGS (1)
  1. ZYPREXA [Suspect]
     Dosage: 30 MG, UNK
     Dates: start: 19970101, end: 19990101

REACTIONS (22)
  - ABDOMINAL PAIN [None]
  - ACETONAEMIA [None]
  - APTYALISM [None]
  - BLOOD CHOLESTEROL INCREASED [None]
  - BLOOD TRIGLYCERIDES INCREASED [None]
  - CHOLELITHIASIS [None]
  - DENTAL CARIES [None]
  - DIABETES MELLITUS [None]
  - DIABETIC COMA [None]
  - DIABETIC COMPLICATION [None]
  - DIABETIC KETOACIDOSIS [None]
  - HYPERTENSION [None]
  - HYPOTENSION [None]
  - KETONURIA [None]
  - LOSS OF CONSCIOUSNESS [None]
  - MASTICATION DISORDER [None]
  - METABOLIC DISORDER [None]
  - OBESITY [None]
  - OVERDOSE [None]
  - PANCREATITIS [None]
  - RENAL FAILURE [None]
  - WEIGHT INCREASED [None]
